FAERS Safety Report 21194267 (Version 2)
Quarter: 2023Q1

REPORT INFORMATION
  Report Type: Spontaneous
  Country: BR (occurrence: BR)
  Receive Date: 20220810
  Receipt Date: 20230118
  Transmission Date: 20230418
  Serious: Yes (Other)
  Sender: FDA-Public Use
  Company Number: BR-JNJFOC-20220806210

PATIENT
  Sex: Female

DRUGS (11)
  1. INFLIXIMAB [Suspect]
     Active Substance: INFLIXIMAB
     Indication: Ankylosing spondylitis
     Route: 041
  2. DIOVAN [Concomitant]
     Active Substance: VALSARTAN
     Dosage: 350/25
  3. ROSUVASTATIN CALCIUM [Concomitant]
     Active Substance: ROSUVASTATIN CALCIUM
  4. METHOTREXATE [Concomitant]
     Active Substance: METHOTREXATE
     Dosage: 1 PILL A DAY FROM MONDAY TO FRIDAY
  5. FOLIC ACID [Concomitant]
     Active Substance: FOLIC ACID
     Dosage: 1 PILL SATURDAY AND SUNDAY
  6. DULOXETINE HYDROCHLORIDE [Concomitant]
     Active Substance: DULOXETINE HYDROCHLORIDE
     Dosage: 1 PILL AFTER LUNCH
  7. PREGABALIN [Concomitant]
     Active Substance: PREGABALIN
     Dosage: 1 PILL AT NIGHT
  8. DIOSMIN [Concomitant]
     Active Substance: DIOSMIN
     Dosage: 1 TO 2 TIMES A DAY, DEPENDING ON THE SWELLING
  9. DOSS [COLECALCIFEROL] [Concomitant]
     Dosage: 1 PILL EVERY 15 DAYS
  10. MIONEVRIX [CARISOPRODOL;CYANOCOBALAMIN;METAMIZOLE;PYRIDOXINE;THIAMINE] [Concomitant]
     Indication: Pain
  11. TRAMADOL [Concomitant]
     Active Substance: TRAMADOL
     Indication: Pain

REACTIONS (4)
  - Pericarditis [Unknown]
  - Diabetes mellitus [Unknown]
  - Ankylosing spondylitis [Recovering/Resolving]
  - Limb injury [Unknown]

NARRATIVE: CASE EVENT DATE: 20210101
